FAERS Safety Report 8011446-7 (Version None)
Quarter: 2011Q4

REPORT INFORMATION
  Report Type: 
  Country: None (occurrence: None)
  Receive Date: 20111222
  Receipt Date: 20111208
  Transmission Date: 20120403
  Serious: Yes (Death, Other)
  Sender: FDA-Public Use
  Company Number: EU-2011-10282

PATIENT
  Sex: Female
  Weight: 60 kg

DRUGS (16)
  1. ETOPOSIDE [Concomitant]
  2. SAMSCA [Suspect]
     Indication: HYPONATRAEMIA
     Dosage: SEE IMAGE ORAL
     Route: 048
     Dates: start: 20110901
  3. SAMSCA [Suspect]
     Indication: INAPPROPRIATE ANTIDIURETIC HORMONE SECRETION
     Dosage: SEE IMAGE ORAL
     Route: 048
     Dates: start: 20110901
  4. SAMSCA [Suspect]
     Indication: HYPONATRAEMIA
     Dosage: SEE IMAGE ORAL
     Route: 048
     Dates: start: 20110909, end: 20110919
  5. SAMSCA [Suspect]
     Indication: INAPPROPRIATE ANTIDIURETIC HORMONE SECRETION
     Dosage: SEE IMAGE ORAL
     Route: 048
     Dates: start: 20110909, end: 20110919
  6. SAMSCA [Suspect]
     Indication: HYPONATRAEMIA
     Dosage: SEE IMAGE ORAL
     Route: 048
     Dates: start: 20110828, end: 20110831
  7. SAMSCA [Suspect]
     Indication: INAPPROPRIATE ANTIDIURETIC HORMONE SECRETION
     Dosage: SEE IMAGE ORAL
     Route: 048
     Dates: start: 20110828, end: 20110831
  8. SAMSCA [Suspect]
     Indication: HYPONATRAEMIA
     Dosage: SEE IMAGE ORAL
     Route: 048
     Dates: start: 20110909, end: 20110919
  9. SAMSCA [Suspect]
     Indication: INAPPROPRIATE ANTIDIURETIC HORMONE SECRETION
     Dosage: SEE IMAGE ORAL
     Route: 048
     Dates: start: 20110909, end: 20110919
  10. SAMSCA [Suspect]
     Indication: HYPONATRAEMIA
     Dosage: SEE IMAGE ORAL
     Route: 048
     Dates: start: 20110325, end: 20110827
  11. SAMSCA [Suspect]
     Indication: INAPPROPRIATE ANTIDIURETIC HORMONE SECRETION
     Dosage: SEE IMAGE ORAL
     Route: 048
     Dates: start: 20110325, end: 20110827
  12. SAMSCA [Suspect]
     Indication: HYPONATRAEMIA
     Dosage: SEE IMAGE ORAL
     Route: 048
     Dates: start: 20111007, end: 20111019
  13. SAMSCA [Suspect]
     Indication: INAPPROPRIATE ANTIDIURETIC HORMONE SECRETION
     Dosage: SEE IMAGE ORAL
     Route: 048
     Dates: start: 20111007, end: 20111019
  14. SAMSCA [Suspect]
     Indication: HYPONATRAEMIA
     Dosage: SEE IMAGE ORAL
     Route: 048
     Dates: start: 20110920, end: 20111006
  15. SAMSCA [Suspect]
     Indication: INAPPROPRIATE ANTIDIURETIC HORMONE SECRETION
     Dosage: SEE IMAGE ORAL
     Route: 048
     Dates: start: 20110920, end: 20111006
  16. CISPLATIN [Concomitant]

REACTIONS (3)
  - WRONG TECHNIQUE IN DRUG USAGE PROCESS [None]
  - INCORRECT DRUG ADMINISTRATION RATE [None]
  - RAPID CORRECTION OF HYPONATRAEMIA [None]
